FAERS Safety Report 6015432-8 (Version None)
Quarter: 2008Q4

REPORT INFORMATION
  Report Type: 
  Country: None (occurrence: None)
  Receive Date: 20081222
  Receipt Date: 20081219
  Transmission Date: 20090506
  Serious: Yes (Other)
  Sender: FDA-Public Use
  Company Number: US-BAYER-200831787NA

PATIENT
  Age: 59 Year
  Sex: Female

DRUGS (2)
  1. CLIMARA [Suspect]
     Indication: HORMONE REPLACEMENT THERAPY
     Route: 062
  2. CLIMARA [Suspect]
     Route: 062

REACTIONS (4)
  - ABDOMINAL OPERATION [None]
  - HEADACHE [None]
  - HOT FLUSH [None]
  - SCAR [None]
